FAERS Safety Report 17406993 (Version 3)
Quarter: 2020Q4

REPORT INFORMATION
  Report Type: Spontaneous
  Country: FR (occurrence: FR)
  Receive Date: 20200212
  Receipt Date: 20201020
  Transmission Date: 20210113
  Serious: Yes (Hospitalization, Other)
  Sender: FDA-Public Use
  Company Number: FR-AUROBINDO-AUR-APL-2020-006343

PATIENT
  Age: 75 Year
  Sex: Male

DRUGS (3)
  1. CLOPIDOGREL [Suspect]
     Active Substance: CLOPIDOGREL BISULFATE
     Indication: CEREBROVASCULAR ACCIDENT
     Dosage: UNK
     Route: 065
  2. AMLODIPINE [Suspect]
     Active Substance: AMLODIPINE BESYLATE
     Indication: PRODUCT USED FOR UNKNOWN INDICATION
     Dosage: UNK
     Route: 065
  3. OLMESARTAN [Suspect]
     Active Substance: OLMESARTAN
     Indication: PRODUCT USED FOR UNKNOWN INDICATION
     Dosage: UNK
     Route: 065

REACTIONS (12)
  - Hemiparesis [Not Recovered/Not Resolved]
  - Abnormal behaviour [Recovered/Resolved]
  - Subdural haematoma [Recovered/Resolved]
  - Staring [Recovered/Resolved]
  - Seizure [Recovered/Resolved]
  - Apathy [Recovered/Resolved]
  - Fall [Recovered/Resolved]
  - Behaviour disorder [Recovering/Resolving]
  - Cerebral haemorrhage [Recovering/Resolving]
  - Miosis [Recovered/Resolved with Sequelae]
  - Cerebellar haematoma [Recovering/Resolving]
  - Coordination abnormal [Recovered/Resolved]
